FAERS Safety Report 12800989 (Version 1)
Quarter: 2016Q4

REPORT INFORMATION
  Report Type: Report from Study
  Country: US (occurrence: US)
  Receive Date: 20161003
  Receipt Date: 20161003
  Transmission Date: 20170207
  Serious: Yes (Hospitalization, Other)
  Sender: FDA-Public Use
  Company Number: US-ROCHE-714026

PATIENT
  Age: 80 Year
  Sex: Female
  Weight: 58 kg

DRUGS (3)
  1. BEVACIZUMAB [Suspect]
     Active Substance: BEVACIZUMAB
     Indication: ENDOMETRIAL CANCER
     Dosage: 870 MG. OVER 30-90 MINUTES ON DAY 01X 6CYCLES. 30/DEC/2009, 27/JAN/2010, 17/FEB/2010, 17/MAR/2010, 0
     Route: 042
  2. CARBOPLATIN. [Suspect]
     Active Substance: CARBOPLATIN
     Indication: ENDOMETRIAL CANCER
     Dosage: AUC= 6 OVER 30 MINUTES ON DAY 1
     Route: 042
     Dates: start: 20091210
  3. IXABEPILONE [Suspect]
     Active Substance: IXABEPILONE
     Indication: ENDOMETRIAL CANCER
     Dosage: DOSE: 50 MG. OVER 01 HOUR ON DAY 1X6 CYCLES. 30/DEC/2009, 27/JAN/2010, 17/FEB/2010, 17/MAR/2010, 07/
     Route: 042

REACTIONS (16)
  - Hyponatraemia [Unknown]
  - Hyponatraemia [Unknown]
  - Syncope [Unknown]
  - Abdominal pain [Unknown]
  - Urinary tract infection [Unknown]
  - Headache [Unknown]
  - White blood cell count decreased [Unknown]
  - Hypertension [Unknown]
  - Syncope [Unknown]
  - Neutrophil count decreased [Unknown]
  - Constipation [Unknown]
  - Hypertension [Unknown]
  - International normalised ratio increased [Unknown]
  - Hyperkalaemia [Unknown]
  - Dehydration [Unknown]
  - Platelet count decreased [Unknown]

NARRATIVE: CASE EVENT DATE: 20100127
